FAERS Safety Report 14038565 (Version 3)
Quarter: 2018Q1

REPORT INFORMATION
  Report Type: Report from Study
  Country: US (occurrence: US)
  Receive Date: 20171004
  Receipt Date: 20180327
  Transmission Date: 20180508
  Serious: Yes (Hospitalization)
  Sender: FDA-Public Use
  Company Number: US-JNJFOC-20171002411

PATIENT
  Age: 63 Year
  Sex: Female

DRUGS (6)
  1. CALCIUM [Concomitant]
     Active Substance: CALCIUM
  2. CLONIDINE. [Concomitant]
     Active Substance: CLONIDINE
  3. METOPROLOL SUCCINATE. [Concomitant]
     Active Substance: METOPROLOL SUCCINATE
  4. MULTIVITAMINS [Concomitant]
     Active Substance: VITAMINS
  5. IMBRUVICA [Suspect]
     Active Substance: IBRUTINIB
     Indication: WALDENSTROM^S MACROGLOBULINAEMIA
     Route: 048
     Dates: start: 20170921, end: 20171030
  6. IMBRUVICA [Suspect]
     Active Substance: IBRUTINIB
     Indication: WALDENSTROM^S MACROGLOBULINAEMIA
     Route: 048

REACTIONS (12)
  - Incorrect dose administered [Unknown]
  - Blood pressure increased [Unknown]
  - White blood cell count decreased [Unknown]
  - Haemoglobin decreased [Recovering/Resolving]
  - Oropharyngeal pain [Unknown]
  - Peripheral swelling [Unknown]
  - Decreased appetite [Unknown]
  - Anxiety [Unknown]
  - Pyrexia [Unknown]
  - Cough [Unknown]
  - Sneezing [Unknown]
  - Off label use [Unknown]

NARRATIVE: CASE EVENT DATE: 20170921
